FAERS Safety Report 15307160 (Version 2)
Quarter: 2018Q4

REPORT INFORMATION
  Report Type: Spontaneous
  Country: US (occurrence: US)
  Receive Date: 20180822
  Receipt Date: 20181008
  Transmission Date: 20190204
  Serious: Yes (Disabling)
  Sender: FDA-Public Use
  Company Number: US-JNJFOC-20180817768

PATIENT
  Sex: Female
  Weight: 79.38 kg

DRUGS (5)
  1. ALMOTRIPTAN MALEATE [Suspect]
     Active Substance: ALMOTRIPTAN MALATE
     Indication: MIGRAINE
     Route: 048
     Dates: start: 2016, end: 2016
  2. AXERT [Suspect]
     Active Substance: ALMOTRIPTAN MALATE
     Indication: MIGRAINE
     Route: 048
     Dates: start: 2016, end: 2017
  3. AXERT [Suspect]
     Active Substance: ALMOTRIPTAN MALATE
     Indication: MIGRAINE
     Route: 048
     Dates: end: 2016
  4. TYLENOL [Suspect]
     Active Substance: ACETAMINOPHEN
     Indication: MIGRAINE
     Route: 048
  5. TYLENOL [Suspect]
     Active Substance: ACETAMINOPHEN
     Route: 048

REACTIONS (4)
  - Product availability issue [Unknown]
  - Animal bite [Unknown]
  - Drug ineffective [Unknown]
  - Product dose omission [Unknown]

NARRATIVE: CASE EVENT DATE: 2016
